FAERS Safety Report 13711830 (Version 2)
Quarter: 2017Q3

REPORT INFORMATION
  Report Type: Spontaneous
  Country: IT (occurrence: IT)
  Receive Date: 20170703
  Receipt Date: 20170712
  Transmission Date: 20171127
  Serious: Yes (Hospitalization, Other)
  Sender: FDA-Public Use
  Company Number: IT-BRISTOL-MYERS SQUIBB COMPANY-BMS-2017-057084

PATIENT
  Age: 76 Year
  Sex: Male
  Weight: 75 kg

DRUGS (1)
  1. OPDIVO [Suspect]
     Active Substance: NIVOLUMAB
     Indication: NON-SMALL CELL LUNG CANCER RECURRENT
     Dosage: 225 MG, QCYCLE
     Route: 042
     Dates: start: 20170504, end: 20170531

REACTIONS (6)
  - Diarrhoea [Recovering/Resolving]
  - Hypochloraemia [Recovering/Resolving]
  - Hyponatraemic syndrome [Recovering/Resolving]
  - Decreased appetite [Recovering/Resolving]
  - Hypokalaemia [Recovering/Resolving]
  - Dysphagia [Recovering/Resolving]

NARRATIVE: CASE EVENT DATE: 20170620
